FAERS Safety Report 11220213 (Version 1)
Quarter: 2015Q2

REPORT INFORMATION
  Report Type: Spontaneous
  Country: US (occurrence: US)
  Receive Date: 20150625
  Receipt Date: 20150625
  Transmission Date: 20150821
  Serious: No
  Sender: FDA-Public Use
  Company Number: US-EXELIXIS-CABO-13003737

PATIENT
  Age: 64 Year
  Sex: Female
  Weight: 65 kg

DRUGS (6)
  1. MUCINEX [Concomitant]
     Active Substance: GUAIFENESIN
  2. COMETRIQ [Suspect]
     Active Substance: CABOZANTINIB S-MALATE
     Dosage: 60 MG, QD
     Route: 048
     Dates: start: 20141021
  3. COMETRIQ [Suspect]
     Active Substance: CABOZANTINIB S-MALATE
     Indication: THYROID CANCER
     Dosage: 140 MG, QD
     Route: 048
     Dates: start: 20131127, end: 20140718
  4. COMETRIQ [Suspect]
     Active Substance: CABOZANTINIB S-MALATE
     Dosage: 80 MG, QD
     Route: 048
     Dates: start: 20140718, end: 20140721
  5. ZYRTEC [Concomitant]
     Active Substance: CETIRIZINE HYDROCHLORIDE
  6. COMETRIQ [Suspect]
     Active Substance: CABOZANTINIB S-MALATE
     Dosage: 100 MG, QD
     Route: 048

REACTIONS (24)
  - Throat irritation [Unknown]
  - Constipation [Unknown]
  - Back pain [Unknown]
  - Neck pain [Unknown]
  - Flatulence [Unknown]
  - Alopecia [Unknown]
  - Nausea [Unknown]
  - Paranasal sinus discomfort [Unknown]
  - Glossodynia [Unknown]
  - Rash [Unknown]
  - Fatigue [Unknown]
  - Oral pain [Unknown]
  - Palmar-plantar erythrodysaesthesia syndrome [Not Recovered/Not Resolved]
  - Saliva altered [Unknown]
  - Decreased appetite [Unknown]
  - Pain in extremity [Unknown]
  - Eating disorder [Unknown]
  - Dysgeusia [Unknown]
  - Skin ulcer [Unknown]
  - Weight decreased [Unknown]
  - Anosmia [Unknown]
  - Ageusia [Not Recovered/Not Resolved]
  - Stomatitis [Unknown]
  - Diarrhoea [Unknown]

NARRATIVE: CASE EVENT DATE: 201312
